FAERS Safety Report 8935196 (Version 1)
Quarter: 2012Q4

REPORT INFORMATION
  Report Type: 
  Country: US (occurrence: US)
  Receive Date: 20121129
  Receipt Date: 20121129
  Transmission Date: 20130627
  Serious: Yes (Hospitalization)
  Sender: FDA-Public Use
  Company Number: PHHY2012US108309

PATIENT
  Age: 80 Year
  Sex: Female

DRUGS (2)
  1. THIAMAZOLE [Suspect]
  2. ASPIRIN [Concomitant]

REACTIONS (4)
  - Pancreatitis acute [Recovered/Resolved]
  - Abdominal tenderness [Recovered/Resolved]
  - Abdominal pain upper [Recovered/Resolved]
  - Nausea [Recovered/Resolved]
